FAERS Safety Report 9179527 (Version 1)
Quarter: 2012Q4

REPORT INFORMATION
  Report Type: Report from Study
  Country: BR (occurrence: BR)
  Receive Date: 20121029
  Receipt Date: 20121029
  Transmission Date: 20130627
  Serious: Yes (Other)
  Sender: FDA-Public Use
  Company Number: BR-US-EMD SERONO, INC.-7152773

PATIENT
  Sex: Male

DRUGS (2)
  1. REBIF [Suspect]
     Indication: PRODUCT USED FOR UNKNOWN INDICATION
     Dates: start: 20120707
  2. PARACETAMOL [Concomitant]
     Indication: PREMEDICATION

REACTIONS (9)
  - Choking [Unknown]
  - Feeding disorder [Unknown]
  - Motor dysfunction [Unknown]
  - Balance disorder [Unknown]
  - Urinary incontinence [Unknown]
  - Gait disturbance [Not Recovered/Not Resolved]
  - Speech disorder [Unknown]
  - Dry mouth [Unknown]
  - Injection site nodule [Unknown]
